FAERS Safety Report 7918640-1 (Version None)
Quarter: 2011Q4

REPORT INFORMATION
  Report Type: 
  Country: None (occurrence: None)
  Receive Date: 20111114
  Receipt Date: 20111102
  Transmission Date: 20120403
  Serious: Yes (Hospitalization, Other)
  Sender: FDA-Public Use
  Company Number: CLOF-1000806

PATIENT
  Age: 67 Year
  Sex: Male

DRUGS (5)
  1. EVOLTRA (CLOFARABINE) SOLUTION FOR INFUSION, UNK [Suspect]
     Indication: ACUTE MYELOID LEUKAEMIA
     Dosage: 45 MG, QDX5, INTRAVENOUS ; 45 MG, QDX5, INTRAVENOUS
     Route: 042
     Dates: start: 20091008, end: 20091012
  2. EVOLTRA (CLOFARABINE) SOLUTION FOR INFUSION, UNK [Suspect]
     Indication: ACUTE MYELOID LEUKAEMIA
     Dosage: 45 MG, QDX5, INTRAVENOUS ; 45 MG, QDX5, INTRAVENOUS
     Route: 042
     Dates: start: 20091117, end: 20091121
  3. DAUNORUBICIN HCL [Suspect]
     Indication: ACUTE MYELOID LEUKAEMIA
     Dosage: 1 DF, QOD, INTRAVENOUS ; 1 DF, QOD, INTRAVENOUS
     Route: 042
     Dates: start: 20091117, end: 20091121
  4. DAUNORUBICIN HCL [Suspect]
     Indication: ACUTE MYELOID LEUKAEMIA
     Dosage: 1 DF, QOD, INTRAVENOUS ; 1 DF, QOD, INTRAVENOUS
     Route: 042
     Dates: start: 20091008, end: 20091012
  5. MYLOTARG [Suspect]
     Indication: ACUTE MYELOID LEUKAEMIA
     Dosage: 1 DF, ONCE, INTRAVENOUS
     Route: 042
     Dates: start: 20091008, end: 20091008

REACTIONS (7)
  - FEBRILE NEUTROPENIA [None]
  - HYPOKALAEMIA [None]
  - HYPOMAGNESAEMIA [None]
  - HYPOTENSION [None]
  - PULMONARY EMBOLISM [None]
  - RENAL IMPAIRMENT [None]
  - RENAL TUBULAR DISORDER [None]
